FAERS Safety Report 20333834 (Version 5)
Quarter: 2022Q2

REPORT INFORMATION
  Report Type: Report from Study
  Country: JP (occurrence: JP)
  Receive Date: 20220113
  Receipt Date: 20220629
  Transmission Date: 20220721
  Serious: Yes (Hospitalization)
  Sender: FDA-Public Use
  Company Number: JP-PFIZER INC-202200016057

PATIENT
  Age: 76 Year
  Sex: Female
  Weight: 41.6 kg

DRUGS (10)
  1. BOSULIF [Suspect]
     Active Substance: BOSUTINIB MONOHYDRATE
     Indication: Chronic myeloid leukaemia
     Dosage: 200 MG, 1X/DAY
     Route: 048
     Dates: start: 20210917, end: 20210923
  2. BOSULIF [Suspect]
     Active Substance: BOSUTINIB MONOHYDRATE
     Dosage: 300 MG, 1X/DAY
     Route: 048
     Dates: start: 20210924, end: 20210930
  3. BOSULIF [Suspect]
     Active Substance: BOSUTINIB MONOHYDRATE
     Dosage: 400 MG, 1X/DAY
     Route: 048
     Dates: start: 20211001
  4. FEBUXOSTAT [Suspect]
     Active Substance: FEBUXOSTAT
     Indication: Prophylaxis
     Dosage: 20 MG, 1X/DAY (AFTER DINNER)
     Route: 048
     Dates: start: 20210913, end: 20210927
  5. FEBUXOSTAT [Suspect]
     Active Substance: FEBUXOSTAT
     Dosage: UNK
     Route: 048
     Dates: start: 20211001
  6. MIYA-BM [Concomitant]
     Active Substance: CLOSTRIDIUM BUTYRICUM SPORES STRAIN M-55
     Indication: Prophylaxis
     Dosage: 1 DF, 1X/DAY (AFTER LUNCH)
     Route: 048
     Dates: start: 20210917
  7. LOPERAMIDE [Concomitant]
     Active Substance: LOPERAMIDE
     Indication: Diarrhoea
     Dosage: 1 MG, AS NEEDED
     Route: 048
     Dates: start: 20210917
  8. ZOVIRAX [Concomitant]
     Active Substance: ACYCLOVIR
     Indication: Antiviral prophylaxis
     Dosage: 200 MG, 1X/DAY (AFTER DINNER)
     Route: 048
     Dates: start: 20210915
  9. VONOPRAZAN FUMARATE [Concomitant]
     Active Substance: VONOPRAZAN FUMARATE
     Indication: Gastrointestinal disorder prophylaxis
     Dosage: 20 MG, 1X/DAY (AFTER DINNER)
     Route: 048
     Dates: start: 20210913
  10. LANSOPRAZOLE [Concomitant]
     Active Substance: LANSOPRAZOLE
     Indication: Prophylaxis against gastrointestinal ulcer
     Dosage: 15 MG, 1X/DAY (AFTER BREAKFAST)
     Dates: start: 20210913, end: 20210914

REACTIONS (3)
  - Hyperuricaemia [Recovered/Resolved]
  - Gout [Recovered/Resolved]
  - Alanine aminotransferase increased [Recovering/Resolving]

NARRATIVE: CASE EVENT DATE: 20210927
